FAERS Safety Report 20660812 (Version 1)
Quarter: 2022Q1

REPORT INFORMATION
  Report Type: Spontaneous
  Country: US (occurrence: US)
  Receive Date: 20220331
  Receipt Date: 20220331
  Transmission Date: 20220424
  Serious: No
  Sender: FDA-Public Use
  Company Number: US-MAYNE PHARMA-2021MYN000420

PATIENT
  Age: 49 Year
  Sex: Female

DRUGS (3)
  1. LIOTHYRONINE [Suspect]
     Active Substance: LIOTHYRONINE
     Indication: Thyroid disorder
     Dosage: 5 MCG
     Route: 048
     Dates: start: 20210529
  2. SINGULAIR [Concomitant]
     Active Substance: MONTELUKAST SODIUM
     Indication: Product used for unknown indication
     Dosage: UNK
     Route: 065
  3. CEFIXIME [Concomitant]
     Active Substance: CEFIXIME
     Indication: Product used for unknown indication
     Dosage: UNK, AS NEEDED
     Route: 048

REACTIONS (4)
  - Abdominal pain upper [Not Recovered/Not Resolved]
  - Diarrhoea [Not Recovered/Not Resolved]
  - Flatulence [Not Recovered/Not Resolved]
  - Nausea [Not Recovered/Not Resolved]

NARRATIVE: CASE EVENT DATE: 20210529
